FAERS Safety Report 18391195 (Version 2)
Quarter: 2021Q3

REPORT INFORMATION
  Report Type: Report from Study
  Country: US (occurrence: US)
  Receive Date: 20201016
  Receipt Date: 20210802
  Transmission Date: 20211014
  Serious: No
  Sender: FDA-Public Use
  Company Number: NVSC2020US276951

PATIENT
  Age: 27 Year
  Sex: Male

DRUGS (2)
  1. GILENYA [Suspect]
     Active Substance: FINGOLIMOD HYDROCHLORIDE
     Indication: RELAPSING-REMITTING MULTIPLE SCLEROSIS
     Dosage: UNK
     Route: 065
     Dates: start: 202006
  2. GILENYA [Suspect]
     Active Substance: FINGOLIMOD HYDROCHLORIDE
     Indication: MULTIPLE SCLEROSIS
     Dosage: 0.5 MG, QD
     Route: 048

REACTIONS (13)
  - Swelling [Unknown]
  - Head injury [Unknown]
  - Mobility decreased [Unknown]
  - Cognitive disorder [Recovering/Resolving]
  - Gait disturbance [Unknown]
  - Fall [Unknown]
  - Amnesia [Unknown]
  - Mental disorder [Recovering/Resolving]
  - Migraine [Unknown]
  - Central nervous system lesion [Unknown]
  - Limb discomfort [Unknown]
  - Memory impairment [Unknown]
  - Dizziness [Unknown]

NARRATIVE: CASE EVENT DATE: 202008
